FAERS Safety Report 16431744 (Version 1)
Quarter: 2019Q3

REPORT INFORMATION
  Report Type: Spontaneous
  Country: US (occurrence: US)
  Receive Date: 20190613
  Receipt Date: 20190613
  Transmission Date: 20191004
  Serious: Yes (Hospitalization)
  Sender: FDA-Public Use
  Company Number: None

PATIENT
  Age: 76 Year
  Sex: Female
  Weight: 56.6 kg

DRUGS (8)
  1. CALCIUM CARBONATE 1.25 G [Concomitant]
     Dates: start: 20160722
  2. LOSARTAN 50 MG TAB [Concomitant]
     Dates: start: 20150507
  3. HYDROCHLOROTHIAZIDE 12.5 MG CAP [Concomitant]
     Dates: start: 20090303
  4. ASPIRIN 81 MG EC TAB [Concomitant]
     Dates: start: 20080213
  5. ALENDRONATE 70 MG TAB [Concomitant]
     Dates: start: 20161213
  6. CHOLECALCIFEROL 800 UNITS [Concomitant]
     Dates: start: 20160722
  7. METFORMIN HCL 500 MG TAB [Concomitant]
     Dates: start: 20080731
  8. ROSUVASTATIN. [Suspect]
     Active Substance: ROSUVASTATIN
     Indication: HYPERLIPIDAEMIA
     Route: 052
     Dates: start: 20181212, end: 20190523

REACTIONS (5)
  - Blood creatine phosphokinase increased [None]
  - Myopathy [None]
  - Adverse drug reaction [None]
  - Autoimmune disorder [None]
  - Antibody test positive [None]

NARRATIVE: CASE EVENT DATE: 20190524
